FAERS Safety Report 21520612 (Version 1)
Quarter: 2022Q4

REPORT INFORMATION
  Report Type: Spontaneous
  Country: US (occurrence: US)
  Receive Date: 20221028
  Receipt Date: 20221028
  Transmission Date: 20230112
  Serious: Yes (Other)
  Sender: FDA-Public Use
  Company Number: US-SA-SAC20221020000099

PATIENT
  Age: 53 Year
  Sex: Male

DRUGS (1)
  1. FABRAZYME [Suspect]
     Active Substance: AGALSIDASE BETA
     Indication: Fabry^s disease
     Dosage: 35 MG QOW
     Route: 041

REACTIONS (5)
  - Hypertensive nephropathy [Unknown]
  - Cerebrovascular accident [Unknown]
  - Proteinuria [Unknown]
  - Hyperuricaemia [Unknown]
  - Oedema peripheral [Unknown]
